FAERS Safety Report 21402243 (Version 1)
Quarter: 2022Q4

REPORT INFORMATION
  Report Type: Spontaneous
  Country: US (occurrence: US)
  Receive Date: 20221003
  Receipt Date: 20221003
  Transmission Date: 20230113
  Serious: Yes (Death, Other)
  Sender: FDA-Public Use
  Company Number: US-SA-SAC20220930001629

PATIENT
  Age: 85 Year
  Sex: Female

DRUGS (1)
  1. ZANTAC [Suspect]
     Active Substance: RANITIDINE HYDROCHLORIDE
     Dosage: UNKNOWN AT THIS TIME
     Dates: start: 201401, end: 201901

REACTIONS (1)
  - Pancreatic carcinoma stage III [Fatal]

NARRATIVE: CASE EVENT DATE: 20200101
